FAERS Safety Report 6482810-2 (Version None)
Quarter: 2009Q4

REPORT INFORMATION
  Report Type: 
  Country: None (occurrence: None)
  Receive Date: 20091209
  Receipt Date: 20091130
  Transmission Date: 20100525
  Serious: No
  Sender: FDA-Public Use
  Company Number: US-JNJFOC-20091200385

PATIENT
  Sex: Male
  Weight: 77.11 kg

DRUGS (2)
  1. SANDOZ FENTANYL TRANSDERMAL SYSTEM [Suspect]
     Indication: ABDOMINAL PAIN
     Dosage: 75 UG/HR 2 PATCHES
     Route: 062
  2. UNKNOWN MEDICATION [Concomitant]

REACTIONS (3)
  - ADVERSE EVENT [None]
  - DRUG ADMINISTRATION ERROR [None]
  - WRONG TECHNIQUE IN DRUG USAGE PROCESS [None]
